FAERS Safety Report 20323533 (Version 1)
Quarter: 2022Q1

REPORT INFORMATION
  Report Type: Spontaneous
  Country: US (occurrence: None)
  Receive Date: 20220111
  Receipt Date: 20220111
  Transmission Date: 20220423
  Serious: Yes (Disabling)
  Sender: FDA-Public Use
  Company Number: None

PATIENT
  Age: 62 Year
  Sex: Female

DRUGS (2)
  1. ZICAM (HOMEOPATHICS) [Suspect]
     Active Substance: HOMEOPATHICS
     Indication: Nasopharyngitis
     Route: 055
  2. DAILY MULTI [Concomitant]

REACTIONS (2)
  - Anosmia [None]
  - Recalled product [None]

NARRATIVE: CASE EVENT DATE: 20220111
